FAERS Safety Report 9818101 (Version 1)
Quarter: 2013Q4

REPORT INFORMATION
  Report Type: Spontaneous
  Country: US (occurrence: None)
  Receive Date: 20131223
  Receipt Date: 20131223
  Transmission Date: 20140711
  Serious: No
  Sender: FDA-Public Use
  Company Number: 218621

PATIENT
  Age: 82 Year
  Sex: Female

DRUGS (5)
  1. PICATO GEL [Suspect]
     Indication: ACTINIC KERATOSIS
     Dosage: TOPICAL
     Dates: start: 20120810, end: 20120812
  2. METOPROLOL (METOPROLOL) (50MG) [Concomitant]
  3. FLECANIDE (FLECAINIDE) (50MG) [Concomitant]
  4. LIPITOR (ATORVASTATIN CALCIUM) 20MG [Concomitant]
  5. LEVOTHYROXINE (LEVOTHYROXINE) 0.25MCG [Concomitant]

REACTIONS (1)
  - Application site scab [None]
